FAERS Safety Report 4754333-X (Version None)
Quarter: 2005Q3

REPORT INFORMATION
  Report Type: 
  Country: None (occurrence: None)
  Receive Date: 20050826
  Receipt Date: 20040720
  Transmission Date: 20060218
  Serious: Yes (Death)
  Sender: FDA-Public Use
  Company Number: USA-2004-0016135

PATIENT
  Age: 51 Year
  Sex: Female

DRUGS (7)
  1. OXYCODONE HCL [Suspect]
  2. MORPHINE SULFATE [Suspect]
  3. ACETAMINOPHEN [Suspect]
  4. PROPOXYPHENE HCL [Suspect]
  5. DIPHENYLHYDRAMINE [Suspect]
  6. TEMAZEPAM [Suspect]
  7. OPIOIDS [Suspect]

REACTIONS (2)
  - INTENTIONAL MISUSE [None]
  - MULTIPLE DRUG OVERDOSE [None]
